FAERS Safety Report 5730722-1 (Version None)
Quarter: 2008Q2

REPORT INFORMATION
  Report Type: 
  Country: None (occurrence: None)
  Receive Date: 20080507
  Receipt Date: 20040921
  Transmission Date: 20081010
  Serious: Yes (Hospitalization)
  Sender: FDA-Public Use
  Company Number: CH-PFIZER INC-2004069066

PATIENT
  Sex: Female

DRUGS (5)
  1. EPANUTIN [Suspect]
     Indication: SYNCOPE
     Route: 048
     Dates: start: 20040807, end: 20040830
  2. TEGRETOL [Suspect]
     Indication: SYNCOPE
     Route: 048
     Dates: start: 20040816, end: 20040830
  3. NEURONTIN [Concomitant]
     Route: 048
  4. ANAFRANIL [Concomitant]
     Route: 048
  5. TRANSTEC TTS [Concomitant]
     Route: 062

REACTIONS (6)
  - ANAEMIA [None]
  - ANTICONVULSANT DRUG LEVEL BELOW THERAPEUTIC [None]
  - HYPERSENSITIVITY [None]
  - LEUKOPENIA [None]
  - LIVER FUNCTION TEST ABNORMAL [None]
  - PYREXIA [None]
